FAERS Safety Report 8608408-5 (Version None)
Quarter: 2012Q3

REPORT INFORMATION
  Report Type: 
  Country: None (occurrence: None)
  Receive Date: 20120821
  Receipt Date: 20120813
  Transmission Date: 20120928
  Serious: Yes (Death)
  Sender: FDA-Public Use
  Company Number: US-ELI_LILLY_AND_COMPANY-US201207006022

PATIENT
  Sex: Female
  Weight: 84.807 kg

DRUGS (7)
  1. HUMULIN 70/30 [Suspect]
     Indication: TYPE 2 DIABETES MELLITUS
     Dosage: 26 U, EACH MORNING
     Dates: start: 20120410
  2. METFORMIN HCL [Concomitant]
  3. GLYBURIDE [Concomitant]
  4. HUMULIN 70/30 [Suspect]
     Dosage: 14 U, EACH EVENING
     Dates: start: 20120410
  5. SIMVASTATIN [Concomitant]
  6. ASPIRIN [Concomitant]
  7. MULTI-VITAMIN [Concomitant]

REACTIONS (1)
  - MYOCARDIAL INFARCTION [None]
